FAERS Safety Report 9385035 (Version 1)
Quarter: 2013Q3

REPORT INFORMATION
  Report Type: Spontaneous
  Country: US (occurrence: US)
  Receive Date: 20130705
  Receipt Date: 20130705
  Transmission Date: 20140515
  Serious: No
  Sender: FDA-Public Use
  Company Number: US-GLAXOSMITHKLINE-A1025742A

PATIENT
  Age: 58 Year
  Sex: Female
  Weight: 84.5 kg

DRUGS (4)
  1. BENLYSTA [Suspect]
     Indication: PRODUCT USED FOR UNKNOWN INDICATION
     Dosage: 120MG EVERY TWO WEEKS
     Route: 065
     Dates: start: 20130507, end: 20130507
  2. CITRACAL + D [Concomitant]
  3. METHOTREXATE SODIUM [Concomitant]
  4. LEUCOVORIN CALCIUM [Concomitant]

REACTIONS (12)
  - Type IV hypersensitivity reaction [Recovered/Resolved]
  - Influenza like illness [Recovered/Resolved]
  - Arthralgia [Recovered/Resolved]
  - Myalgia [Recovered/Resolved]
  - Headache [Recovered/Resolved]
  - Hyperhidrosis [Recovered/Resolved]
  - Nausea [Recovered/Resolved]
  - Pleuritic pain [Recovered/Resolved]
  - Pyrexia [Recovered/Resolved]
  - Wheezing [Recovered/Resolved]
  - Rales [Recovered/Resolved]
  - Cough [Recovered/Resolved]
